FAERS Safety Report 5505251-0 (Version None)
Quarter: 2007Q4

REPORT INFORMATION
  Report Type: 
  Country: None (occurrence: None)
  Receive Date: 20071102
  Receipt Date: 20071022
  Transmission Date: 20080405
  Serious: Yes (Death)
  Sender: FDA-Public Use
  Company Number: AT-WYE-H00993707

PATIENT
  Age: 45 Year
  Sex: Male

DRUGS (19)
  1. PIPERACILLIN AND TAZOBACTAM [Suspect]
     Indication: PROPHYLAXIS
     Dosage: UNKNOWN
     Route: 042
  2. PIPERACILLIN AND TAZOBACTAM [Suspect]
     Indication: KLEBSIELLA INFECTION
  3. VANCOMYCIN [Concomitant]
     Indication: PROPHYLAXIS
     Dosage: UNKNOWN
  4. VANCOMYCIN [Concomitant]
     Indication: KLEBSIELLA INFECTION
  5. VANCOMYCIN [Concomitant]
     Indication: STAPHYLOCOCCAL INFECTION
  6. AMPHOTERICIN B [Concomitant]
     Indication: PROPHYLAXIS
     Dosage: UNKNOWN
  7. AMPHOTERICIN B [Concomitant]
     Indication: KLEBSIELLA INFECTION
  8. PROLEUKIN [Concomitant]
     Indication: IMMUNOSUPPRESSION
     Dosage: UNKNOWN
  9. CELLCEPT [Concomitant]
     Indication: IMMUNOSUPPRESSION
     Dosage: UNKNOWN
  10. SIROLIMUS [Concomitant]
     Indication: IMMUNOSUPPRESSION
     Dosage: UNKNOWN
  11. ERTAPENEM [Concomitant]
     Indication: PYREXIA
  12. ERTAPENEM [Concomitant]
     Indication: KLEBSIELLA INFECTION
  13. AZITHROMYCIN [Concomitant]
     Indication: PNEUMONIA
     Dosage: UNKNOWN
  14. TEICOPLANIN [Concomitant]
     Indication: PNEUMONIA
     Dosage: UNKNOWN
  15. MEROPENEM [Concomitant]
     Indication: PNEUMONIA
     Dosage: UNKNOWN
  16. LINEZOLID [Concomitant]
     Indication: STAPHYLOCOCCAL INFECTION
     Dosage: UNKNOWN
  17. CIPROFLOXACIN [Concomitant]
     Indication: PROPHYLAXIS
     Dosage: UNKNOWN
  18. CIPROFLOXACIN [Concomitant]
     Indication: KLEBSIELLA INFECTION
  19. TACROLIMUS [Concomitant]
     Indication: IMMUNOSUPPRESSION
     Dosage: UNKNOWN

REACTIONS (3)
  - ENDOCARDITIS [None]
  - KLEBSIELLA INFECTION [None]
  - PATHOGEN RESISTANCE [None]
